FAERS Safety Report 4655284-1 (Version None)
Quarter: 2005Q2

REPORT INFORMATION
  Report Type: 
  Country: None (occurrence: None)
  Receive Date: 20050401
  Receipt Date: 20041208
  Transmission Date: 20051028
  Serious: No
  Sender: FDA-Public Use
  Company Number: 200421145BWH

PATIENT
  Sex: Female

DRUGS (2)
  1. CIPRO XR [Suspect]
     Indication: URINARY TRACT INFECTION
     Dosage: 1000 MG, ORAL
     Route: 048
  2. URISTAT [Concomitant]

REACTIONS (1)
  - INSOMNIA [None]
